FAERS Safety Report 8849036 (Version 1)
Quarter: 2012Q4

REPORT INFORMATION
  Report Type: Report from Study
  Country: ES (occurrence: ES)
  Receive Date: 20121019
  Receipt Date: 20121019
  Transmission Date: 20130627
  Serious: Yes (Hospitalization)
  Sender: FDA-Public Use
  Company Number: PHHO2012ES014583

PATIENT
  Age: 33 Year
  Sex: Female
  Weight: 49 kg

DRUGS (1)
  1. ACZ885 [Suspect]
     Indication: HYPER IGD SYNDROME
     Dosage: 300 mg, UNK
     Route: 058
     Dates: start: 20110513

REACTIONS (1)
  - Groin abscess [Recovered/Resolved]
